FAERS Safety Report 10213649 (Version 2)
Quarter: 2014Q2

REPORT INFORMATION
  Report Type: Spontaneous
  Country: US (occurrence: US)
  Receive Date: 20140603
  Receipt Date: 20140623
  Transmission Date: 20141212
  Serious: Yes (Other)
  Sender: FDA-Public Use
  Company Number: US-BEH-2014042842

PATIENT
  Age: 32 Year
  Sex: Female

DRUGS (3)
  1. BERINERT [Suspect]
     Indication: HEREDITARY ANGIOEDEMA
     Dosage: 30 MG/3ML
     Route: 042
     Dates: start: 20140519, end: 20140519
  2. FIRAZYR [ICATIBANT] [Suspect]
     Dates: start: 20140519
  3. DANAZOL [Concomitant]

REACTIONS (1)
  - Hereditary angioedema [Recovered/Resolved]
